FAERS Safety Report 5612978-9 (Version None)
Quarter: 2008Q1

REPORT INFORMATION
  Report Type: 
  Country: None (occurrence: None)
  Receive Date: 20080204
  Receipt Date: 20080123
  Transmission Date: 20080703
  Serious: Yes (Hospitalization)
  Sender: FDA-Public Use
  Company Number: FR-RANBAXY-2008US-12821

PATIENT

DRUGS (1)
  1. ISOPTIN SR [Suspect]
     Indication: DRUG USE FOR UNKNOWN INDICATION
     Dosage: 240 MG, QD
     Route: 048
     Dates: start: 20070901

REACTIONS (7)
  - ANOREXIA [None]
  - ASTHENIA [None]
  - GENERAL PHYSICAL CONDITION ABNORMAL [None]
  - PRURITUS [None]
  - PSORIASIS [None]
  - SLEEP DISORDER [None]
  - WEIGHT DECREASED [None]
